FAERS Safety Report 9908078 (Version 1)
Quarter: 2014Q1

REPORT INFORMATION
  Report Type: Spontaneous
  Country: US (occurrence: None)
  Receive Date: 20140212
  Receipt Date: 20140212
  Transmission Date: 20141002
  Serious: Yes (Disabling)
  Sender: FDA-Public Use
  Company Number: None

PATIENT
  Sex: Female
  Weight: 81.65 kg

DRUGS (10)
  1. GLIP/IMETFORM [Suspect]
     Indication: DIABETES MELLITUS
     Dates: start: 20131009, end: 20140127
  2. BIZOPR/HCTZ [Concomitant]
  3. DOXAZOSIN [Concomitant]
  4. LISINOPRIL [Concomitant]
  5. GLIPIZIDE [Concomitant]
  6. ASA [Concomitant]
  7. ACETAMINOPHEN [Concomitant]
  8. MULTIVITAMIN [Concomitant]
  9. TEARS [Concomitant]
  10. TUMS [Concomitant]

REACTIONS (6)
  - Dizziness [None]
  - Abdominal pain upper [None]
  - Diarrhoea [None]
  - Heart rate increased [None]
  - Headache [None]
  - Chromaturia [None]
